FAERS Safety Report 8816565 (Version 1)
Quarter: 2012Q4

REPORT INFORMATION
  Report Type: Spontaneous
  Country: US (occurrence: None)
  Receive Date: 20120928
  Receipt Date: 20120928
  Transmission Date: 20130627
  Serious: Yes (Hospitalization)
  Sender: FDA-Public Use
  Company Number: B0833592A

PATIENT
  Age: 32 Year
  Sex: Female

DRUGS (9)
  1. ENOXAPARIN [Suspect]
  2. SUXAMETHONIUM [Suspect]
  3. RANITIDINE HYDROCHLORIDE [Suspect]
  4. ANTIBIOTIC [Suspect]
  5. PANTOPRAZOLE [Suspect]
  6. SUCRALFATE [Suspect]
  7. METOCLOPRAMIDE [Suspect]
  8. NALBUPHINE [Suspect]
  9. PROPOFOL [Suspect]

REACTIONS (2)
  - Exposure during pregnancy [None]
  - Caesarean section [None]
